FAERS Safety Report 22623862 (Version 2)
Quarter: 2023Q2

REPORT INFORMATION
  Report Type: Spontaneous
  Country: BR (occurrence: None)
  Receive Date: 20230621
  Receipt Date: 20230622
  Transmission Date: 20230721
  Serious: Yes (Hospitalization, Other)
  Sender: FDA-Public Use
  Company Number: BR-ROCHE-3370379

PATIENT
  Sex: Female

DRUGS (7)
  1. HERCEPTIN [Suspect]
     Active Substance: TRASTUZUMAB
     Indication: Breast cancer
     Dosage: 3 CYCLES
     Route: 058
     Dates: start: 20190801
  2. PERJETA [Suspect]
     Active Substance: PERTUZUMAB
     Indication: Breast cancer
     Dosage: 3 CYCLES
     Route: 058
     Dates: start: 20190801
  3. PERJETA [Suspect]
     Active Substance: PERTUZUMAB
     Dosage: 3 CYCLES
     Route: 042
  4. PHESGO [Suspect]
     Active Substance: HYALURONIDASE-ZZXF\PERTUZUMAB\TRASTUZUMAB
     Indication: Breast cancer
     Dosage: TOTALING 18 CYCLES
     Route: 058
     Dates: end: 20200525
  5. PACLITAXEL [Suspect]
     Active Substance: PACLITAXEL
     Indication: Breast cancer
     Dosage: 3 CYCLES
     Route: 065
  6. HERCEPTIN [Suspect]
     Active Substance: TRASTUZUMAB
     Indication: Breast cancer
     Dosage: 3 CYCLES
     Route: 042
  7. TAMOXIFEN [Concomitant]
     Active Substance: TAMOXIFEN
     Dates: start: 20190802

REACTIONS (9)
  - Febrile neutropenia [Unknown]
  - Respiratory tract infection [Unknown]
  - Abscess limb [Unknown]
  - Pain [Unknown]
  - Application site oedema [Unknown]
  - Acne [Unknown]
  - Pustule [Unknown]
  - Endometriosis [Unknown]
  - Hypokinesia [Unknown]
